FAERS Safety Report 7957240-4 (Version None)
Quarter: 2011Q4

REPORT INFORMATION
  Report Type: 
  Country: None (occurrence: None)
  Receive Date: 20111201
  Receipt Date: 20111115
  Transmission Date: 20120403
  Serious: Yes (Other)
  Sender: FDA-Public Use
  Company Number: COL_10337_2011

PATIENT
  Sex: Female

DRUGS (3)
  1. COLGATE TOTAL CLEAN MINT PASTE TOOTHPASTE [Suspect]
     Indication: GINGIVITIS
     Dosage: 1.5 CM  EACH TIME ORAL
     Route: 048
     Dates: start: 20111111, end: 20111112
  2. COLGATE TOTAL CLEAN MINT PASTE TOOTHPASTE [Suspect]
     Indication: DENTAL PLAQUE
     Dosage: 1.5 CM  EACH TIME ORAL
     Route: 048
     Dates: start: 20111111, end: 20111112
  3. COLGATE TOTAL CLEAN MINT PASTE TOOTHPASTE [Suspect]
     Indication: DENTAL CARIES
     Dosage: 1.5 CM  EACH TIME ORAL
     Route: 048
     Dates: start: 20111111, end: 20111112

REACTIONS (5)
  - PYREXIA [None]
  - INSOMNIA [None]
  - BURNING SENSATION [None]
  - DYSPHAGIA [None]
  - ABDOMINAL DISTENSION [None]
